FAERS Safety Report 4368882-X (Version None)
Quarter: 2004Q2

REPORT INFORMATION
  Report Type: 
  Country: None (occurrence: None)
  Receive Date: 20040525
  Receipt Date: 20040511
  Transmission Date: 20050107
  Serious: Yes (Hospitalization)
  Sender: FDA-Public Use
  Company Number: US-SHR-03-016367

PATIENT
  Age: 40 Year
  Sex: Female
  Weight: 71.7 kg

DRUGS (4)
  1. BETASERON [Suspect]
     Indication: MULTIPLE SCLEROSIS
     Dosage: 8 MIU, EVERY 2D, SUBCUTANEOUS
     Route: 058
     Dates: start: 20021008, end: 20030401
  2. LISINOPRIL W/HYDROCHLOROTHIAZONE (LISINOPRIL) [Concomitant]
  3. NEURONTIN [Concomitant]
  4. CYLERT [Concomitant]

REACTIONS (4)
  - ALOPECIA [None]
  - ANKLE FRACTURE [None]
  - FALL [None]
  - POST PROCEDURAL COMPLICATION [None]
